FAERS Safety Report 16110744 (Version 1)
Quarter: 2019Q1

REPORT INFORMATION
  Report Type: Report from Study
  Country: US (occurrence: US)
  Receive Date: 20190325
  Receipt Date: 20190325
  Transmission Date: 20190418
  Serious: Yes (Death, Hospitalization, Other)
  Sender: FDA-Public Use
  Company Number: US-GILEAD-2019-0398122

PATIENT
  Age: 68 Year
  Sex: Female

DRUGS (4)
  1. AMBRISENTAN [Suspect]
     Active Substance: AMBRISENTAN
     Indication: CONNECTIVE TISSUE DISORDER
     Dosage: 10 MG, QD
     Route: 048
     Dates: start: 20121215
  2. AMBRISENTAN [Suspect]
     Active Substance: AMBRISENTAN
     Indication: PULMONARY ARTERIAL HYPERTENSION
  3. AMBRISENTAN [Suspect]
     Active Substance: AMBRISENTAN
     Indication: SCLERODERMA
  4. AMBRISENTAN [Suspect]
     Active Substance: AMBRISENTAN
     Indication: HEART DISEASE CONGENITAL

REACTIONS (8)
  - Primary biliary cholangitis [Fatal]
  - Oliguria [Unknown]
  - Renal failure [Fatal]
  - Respiratory distress [Unknown]
  - Peripheral swelling [Unknown]
  - Dyspnoea [Unknown]
  - Gastrointestinal haemorrhage [Unknown]
  - Chronic respiratory failure [Fatal]
